FAERS Safety Report 10254818 (Version 1)
Quarter: 2014Q2

REPORT INFORMATION
  Report Type: Spontaneous
  Country: US (occurrence: US)
  Receive Date: 20140624
  Receipt Date: 20140624
  Transmission Date: 20141212
  Serious: Yes (Hospitalization)
  Sender: FDA-Public Use
  Company Number: 2014SP003406

PATIENT
  Age: 64 Year
  Sex: Male
  Weight: 113.8 kg

DRUGS (14)
  1. CYTARABINE [Suspect]
     Indication: ACUTE MYELOID LEUKAEMIA
     Route: 042
     Dates: start: 20140427, end: 20140503
  2. CYTARABINE [Suspect]
     Route: 042
     Dates: start: 20140427, end: 20140503
  3. DAUNORUBICIN [Suspect]
     Indication: ACUTE MYELOID LEUKAEMIA
     Route: 040
     Dates: start: 20140427, end: 20140429
  4. DAUNORUBICIN [Suspect]
     Route: 040
     Dates: start: 20140427, end: 20140429
  5. CELECOXIB [Concomitant]
     Indication: PAIN
     Route: 048
     Dates: start: 20091026
  6. ACETAMINOPHEN W/HYDROCODONE [Concomitant]
     Indication: PAIN
     Dates: start: 20091221
  7. CIPROFLOXACIN [Concomitant]
     Indication: PROPHYLAXIS
     Route: 048
     Dates: end: 20140608
  8. METOPROLOL [Concomitant]
     Indication: HYPERTENSION
     Route: 048
     Dates: end: 20140608
  9. PROCHLORPERAZINE [Concomitant]
     Indication: NAUSEA
     Route: 048
  10. PROCHLORPERAZINE [Concomitant]
     Indication: VOMITING
     Route: 048
  11. TRAZODONE [Concomitant]
     Indication: SLEEP DISORDER
     Route: 048
  12. ZOLPIDEM [Concomitant]
     Indication: SLEEP DISORDER
     Route: 048
  13. FILGRASTIM [Concomitant]
     Route: 058
  14. DOCUSATE [Concomitant]
     Indication: CONSTIPATION
     Route: 048

REACTIONS (4)
  - Arthritis bacterial [Recovered/Resolved]
  - Arthralgia [Unknown]
  - Swelling [Unknown]
  - Neutropenia [Unknown]
